FAERS Safety Report 6399349-5 (Version None)
Quarter: 2009Q4

REPORT INFORMATION
  Report Type: 
  Country: None (occurrence: None)
  Receive Date: 20091014
  Receipt Date: 20091006
  Transmission Date: 20100525
  Serious: Yes (Hospitalization, Other)
  Sender: FDA-Public Use
  Company Number: CA-BAYER-200610654GDS

PATIENT
  Sex: Male

DRUGS (7)
  1. CIPRO [Suspect]
     Indication: PROSTATE INFECTION
     Dosage: UNIT DOSE: 500 MG
     Route: 048
     Dates: start: 20040101
  2. GABAPENTIN [Concomitant]
     Indication: UNEVALUABLE EVENT
     Dosage: UNIT DOSE: 400 MG
     Route: 048
     Dates: start: 20000101
  3. TOPIRAMATE [Concomitant]
     Indication: UNEVALUABLE EVENT
     Route: 048
     Dates: start: 20000101
  4. CLONAZEPAM [Concomitant]
     Indication: UNEVALUABLE EVENT
     Route: 048
     Dates: start: 19980101
  5. MORPHINE [Concomitant]
     Indication: UNEVALUABLE EVENT
     Dosage: UNIT DOSE: 10 MG
     Route: 048
     Dates: start: 20000101
  6. BENZODIAZEPINE [Concomitant]
     Indication: DYSTONIA
  7. ELTROXIN [Concomitant]

REACTIONS (11)
  - ASTHENIA [None]
  - CONFUSIONAL STATE [None]
  - FALL [None]
  - JOINT DISLOCATION [None]
  - JOINT SWELLING [None]
  - MONOPLEGIA [None]
  - MUSCULAR WEAKNESS [None]
  - MUSCULOSKELETAL PAIN [None]
  - NAUSEA [None]
  - NECK PAIN [None]
  - RIB FRACTURE [None]
